FAERS Safety Report 7403046-4 (Version None)
Quarter: 2011Q2

REPORT INFORMATION
  Report Type: 
  Country: None (occurrence: None)
  Receive Date: 20110408
  Receipt Date: 20110225
  Transmission Date: 20111010
  Serious: No
  Sender: FDA-Public Use
  Company Number: US-NOVEN-11US001900

PATIENT
  Sex: Male

DRUGS (3)
  1. FENTANYL [Suspect]
     Dosage: UNK
     Route: 062
     Dates: start: 20080101
  2. ANTIHYPERTENSIVES [Suspect]
     Indication: BLOOD PRESSURE
     Dosage: UNK
  3. FENTANYL [Suspect]
     Indication: PAIN
     Dosage: 50 UG, Q72HR
     Route: 062
     Dates: start: 20110219

REACTIONS (4)
  - CONSTIPATION [None]
  - DRY MOUTH [None]
  - HYPERTENSION [None]
  - INADEQUATE ANALGESIA [None]
